FAERS Safety Report 17023818 (Version 6)
Quarter: 2023Q2

REPORT INFORMATION
  Report Type: Spontaneous
  Country: JP (occurrence: JP)
  Receive Date: 20191113
  Receipt Date: 20230613
  Transmission Date: 20230721
  Serious: Yes (Hospitalization, Other)
  Sender: FDA-Public Use
  Company Number: JP-BRISTOL-MYERS SQUIBB COMPANY-BMS-2018-027635

PATIENT
  Age: 69 Year
  Sex: Male

DRUGS (2)
  1. OPDIVO [Suspect]
     Active Substance: NIVOLUMAB
     Indication: Gastric cancer
     Dosage: 3 MG/KG, Q2WK?3MG/KG/DAY(1/2018,2018?2,13/3,13/4,2018,8/5)
     Route: 041
     Dates: start: 201801, end: 20180508
  2. OPDIVO [Suspect]
     Active Substance: NIVOLUMAB
     Route: 041
     Dates: start: 20180313

REACTIONS (6)
  - Fulminant type 1 diabetes mellitus [Recovered/Resolved]
  - Autoimmune hepatitis [Unknown]
  - Inflammatory bowel disease [Recovering/Resolving]
  - Diabetic ketoacidosis [Unknown]
  - Dermatitis psoriasiform [Recovered/Resolved]
  - Gastroenteritis [Unknown]

NARRATIVE: CASE EVENT DATE: 20180313
